FAERS Safety Report 5151931-9 (Version None)
Quarter: 2006Q4

REPORT INFORMATION
  Report Type: 
  Country: None (occurrence: None)
  Receive Date: 20061107
  Receipt Date: 20061023
  Transmission Date: 20070319
  Serious: Yes (Death)
  Sender: FDA-Public Use
  Company Number: B0443294A

PATIENT
  Age: 43 Year
  Sex: 0

DRUGS (3)
  1. PAXIL [Suspect]
  2. CYCLOBENZAPRINE HCI (CYCLOBENZAPRINE HCI) [Suspect]
     Dosage: ORAL
     Route: 048
  3. METAXALONE [Suspect]

REACTIONS (1)
  - COMPLETED SUICIDE [None]
